FAERS Safety Report 14055873 (Version 3)
Quarter: 2017Q4

REPORT INFORMATION
  Report Type: Report from Study
  Country: FR (occurrence: FR)
  Receive Date: 20171006
  Receipt Date: 20171214
  Transmission Date: 20180321
  Serious: Yes (Hospitalization)
  Sender: FDA-Public Use
  Company Number: FR-JNJFOC-20170928757

PATIENT
  Age: 87 Year
  Sex: Male
  Weight: 77.9 kg

DRUGS (24)
  1. DILTIAZEM. [Concomitant]
     Active Substance: DILTIAZEM
     Dosage: 1 CAPSULE IN MORNING
     Route: 048
     Dates: start: 20170918
  2. NOVORAPID [Concomitant]
     Active Substance: INSULIN ASPART
     Dosage: 100 U/ML
     Route: 058
     Dates: start: 20171003
  3. IBRUTINIB [Suspect]
     Active Substance: IBRUTINIB
     Indication: CHRONIC LYMPHOCYTIC LEUKAEMIA
     Route: 048
     Dates: start: 20171012
  4. IBRUTINIB [Suspect]
     Active Substance: IBRUTINIB
     Indication: CHRONIC LYMPHOCYTIC LEUKAEMIA
     Route: 048
     Dates: start: 20170926
  5. IBRUTINIB [Suspect]
     Active Substance: IBRUTINIB
     Indication: CHRONIC LYMPHOCYTIC LEUKAEMIA
     Route: 048
     Dates: start: 20171004
  6. IBRUTINIB [Suspect]
     Active Substance: IBRUTINIB
     Indication: CHRONIC LYMPHOCYTIC LEUKAEMIA
     Route: 048
     Dates: start: 20170927
  7. HYDROCHLOROTHIAZIDE. [Concomitant]
     Active Substance: HYDROCHLOROTHIAZIDE
     Dosage: 0.5 TABLET
     Route: 048
     Dates: start: 20170918
  8. ZOLPIDEM [Concomitant]
     Active Substance: ZOLPIDEM\ZOLPIDEM TARTRATE
     Dosage: 10 MG NIGHT
     Route: 048
     Dates: start: 20170922
  9. FLUINDIONE [Concomitant]
     Active Substance: FLUINDIONE
     Dosage: 1.25 TABLET EVENING, BY MOUTH, UNTIL DISCONTINUATION
     Route: 048
     Dates: start: 20170921
  10. BACTRIM [Concomitant]
     Active Substance: SULFAMETHOXAZOLE\TRIMETHOPRIM
     Route: 065
  11. ESIDREX [Concomitant]
     Active Substance: HYDROCHLOROTHIAZIDE
     Route: 065
  12. IBRUTINIB [Suspect]
     Active Substance: IBRUTINIB
     Indication: CHRONIC LYMPHOCYTIC LEUKAEMIA
     Dosage: 2 CAPSULE, IN THE MORNING BY MOUTH UNTIL DISCONTINUATION
     Route: 048
     Dates: start: 20171002
  13. HYDROCHLOROTHIAZIDE. [Concomitant]
     Active Substance: HYDROCHLOROTHIAZIDE
     Dosage: 0.5 TABLET, MORNING, BY MOUTH, UNTIL DISCONTINUATION
     Route: 048
  14. PRINCI B [Concomitant]
     Active Substance: CYANOCOBALAMIN\PYRIDOXINE HYDROCHLORIDE\THIAMINE
     Dosage: 1 TABLET, MORNING, NOON, EVENING, BY MOUTH, UNTIL DISCONTINUATION
     Route: 048
     Dates: start: 20170918
  15. IMOVANE [Concomitant]
     Active Substance: ZOPICLONE
     Dosage: 3.75 MG, NIGHT, BY MOUTH, UNTIL DISCONTINUATION
     Route: 048
     Dates: start: 20170930
  16. FLUINDIONE [Concomitant]
     Active Substance: FLUINDIONE
     Route: 048
     Dates: start: 20170929
  17. FLUINDIONE [Concomitant]
     Active Substance: FLUINDIONE
     Dosage: 20 MG, EVENING, BY MOUTH, UNTIL DISCONTINUATION
     Route: 048
     Dates: start: 20170918
  18. MONOTILDIEM [Concomitant]
     Active Substance: DILTIAZEM
     Route: 065
  19. IBRUTINIB [Suspect]
     Active Substance: IBRUTINIB
     Indication: CHRONIC LYMPHOCYTIC LEUKAEMIA
     Route: 048
     Dates: start: 20170928
  20. IBRUTINIB [Suspect]
     Active Substance: IBRUTINIB
     Indication: CHRONIC LYMPHOCYTIC LEUKAEMIA
     Route: 048
     Dates: start: 20170705, end: 20170917
  21. FLUINDIONE [Concomitant]
     Active Substance: FLUINDIONE
     Dosage: 1 TABLET IN EVENING
     Route: 048
     Dates: start: 20170926
  22. AMLODIPINE [Concomitant]
     Active Substance: AMLODIPINE BESYLATE
     Dosage: 1 CAPSULE IN MORNING
     Route: 048
     Dates: start: 20170922
  23. ZELITREX [Concomitant]
     Active Substance: VALACYCLOVIR HYDROCHLORIDE
  24. BACTRIM [Concomitant]
     Active Substance: SULFAMETHOXAZOLE\TRIMETHOPRIM
     Route: 065
     Dates: end: 20170911

REACTIONS (1)
  - Toxic skin eruption [Recovered/Resolved]

NARRATIVE: CASE EVENT DATE: 20170911
